FAERS Safety Report 6726335-5 (Version None)
Quarter: 2010Q2

REPORT INFORMATION
  Report Type: 
  Country: None (occurrence: None)
  Receive Date: 20100514
  Receipt Date: 20100505
  Transmission Date: 20101027
  Serious: Yes (Hospitalization)
  Sender: FDA-Public Use
  Company Number: A0791250A

PATIENT
  Age: 67 Year
  Sex: Male

DRUGS (1)
  1. AVANDIA [Suspect]
     Indication: DIABETES MELLITUS
     Dosage: 8MG PER DAY
     Route: 048
     Dates: start: 20040806, end: 20071201

REACTIONS (4)
  - ARRHYTHMIA [None]
  - CARDIAC VALVE DISEASE [None]
  - DYSPNOEA [None]
  - HEART VALVE REPLACEMENT [None]
